FAERS Safety Report 6401658-8 (Version None)
Quarter: 2009Q4

REPORT INFORMATION
  Report Type: 
  Country: None (occurrence: None)
  Receive Date: 20091009
  Receipt Date: 20091009
  Transmission Date: 20100525
  Serious: Yes (Hospitalization)
  Sender: FDA-Public Use
  Company Number: None

PATIENT
  Sex: Male
  Weight: 85.3 kg

DRUGS (2)
  1. CISPLATIN [Suspect]
     Dosage: 157 MG
     Dates: end: 20090916
  2. VINORELBINE TARTRATE [Suspect]
     Dosage: 126 MG
     Dates: end: 20090924

REACTIONS (8)
  - ABDOMINAL DISTENSION [None]
  - ABDOMINAL PAIN [None]
  - BLOOD PRESSURE INCREASED [None]
  - BURNING SENSATION [None]
  - CONSTIPATION [None]
  - ILEUS [None]
  - NAUSEA [None]
  - VOMITING [None]
